FAERS Safety Report 8408409-6 (Version None)
Quarter: 2012Q2

REPORT INFORMATION
  Report Type: 
  Country: None (occurrence: None)
  Receive Date: 20120604
  Receipt Date: 20120522
  Transmission Date: 20120825
  Serious: Yes (Hospitalization)
  Sender: FDA-Public Use
  Company Number: JP-ROCHE-1037956

PATIENT
  Sex: Female

DRUGS (16)
  1. RHEUMATREX [Concomitant]
     Indication: RHEUMATOID ARTHRITIS
     Route: 048
  2. LOXONIN [Concomitant]
     Indication: RHEUMATOID ARTHRITIS
     Route: 048
     Dates: start: 20080409, end: 20080909
  3. ACTEMRA [Suspect]
     Route: 041
     Dates: start: 20080709, end: 20090703
  4. ACTEMRA [Suspect]
     Route: 041
     Dates: start: 20090909, end: 20100224
  5. ACTEMRA [Suspect]
     Route: 041
     Dates: start: 20100407, end: 20100723
  6. ACTEMRA [Suspect]
     Route: 041
     Dates: start: 20101126, end: 20110119
  7. ACTEMRA [Suspect]
     Route: 041
     Dates: start: 20110316
  8. LOXONIN [Concomitant]
     Route: 048
     Dates: start: 20110128
  9. ACTEMRA [Suspect]
     Indication: RHEUMATOID ARTHRITIS
     Route: 041
     Dates: start: 20040202, end: 20080514
  10. ACTEMRA [Suspect]
     Route: 041
     Dates: start: 20101022, end: 20101022
  11. ACTEMRA [Suspect]
     Route: 041
     Dates: start: 20090807, end: 20090807
  12. LOXONIN [Concomitant]
     Route: 048
     Dates: start: 20081112
  13. PROTECADIN [Concomitant]
     Route: 048
     Dates: start: 20110202
  14. ACTEMRA [Suspect]
     Route: 041
     Dates: start: 20100827, end: 20100827
  15. LANSOPRAZOLE [Concomitant]
     Route: 048
     Dates: start: 20110203
  16. FOLIAMIN [Concomitant]
     Route: 048
     Dates: start: 20110316

REACTIONS (3)
  - HAEMATOMA [None]
  - RHEUMATOID VASCULITIS [None]
  - NASOPHARYNGITIS [None]
